FAERS Safety Report 7628846-7 (Version None)
Quarter: 2011Q3

REPORT INFORMATION
  Report Type: 
  Country: None (occurrence: None)
  Receive Date: 20110722
  Receipt Date: 20110715
  Transmission Date: 20111222
  Serious: Yes (Death)
  Sender: FDA-Public Use
  Company Number: JP-BRISTOL-MYERS SQUIBB COMPANY-15900525

PATIENT

DRUGS (1)
  1. BARACLUDE [Suspect]
     Dosage: FORMU: ENTECAVIR HYDRATE
     Route: 064

REACTIONS (2)
  - CIRCULATORY COLLAPSE [None]
  - INTRA-UTERINE DEATH [None]
